FAERS Safety Report 9629967 (Version 2)
Quarter: 2013Q4

REPORT INFORMATION
  Report Type: Spontaneous
  Country: GB (occurrence: GB)
  Receive Date: 20131017
  Receipt Date: 20131114
  Transmission Date: 20140711
  Serious: No
  Sender: FDA-Public Use
  Company Number: GB-TAKEDA-2013TEU001304

PATIENT
  Sex: 0

DRUGS (2)
  1. ACTOS [Suspect]
     Indication: TYPE 2 DIABETES MELLITUS
     Dosage: 30 MG, QD
     Route: 048
     Dates: start: 20090522
  2. TAMOXIFEN [Suspect]
     Indication: BREAST CANCER
     Dosage: 20 MG, QD
     Dates: start: 20091115, end: 20130212

REACTIONS (1)
  - Osteopenia [Unknown]
